FAERS Safety Report 10724102 (Version 1)
Quarter: 2015Q1

REPORT INFORMATION
  Report Type: Spontaneous
  Country: US (occurrence: None)
  Receive Date: 20150116
  Receipt Date: 20150116
  Transmission Date: 20150721
  Serious: Yes (Other)
  Sender: FDA-Public Use
  Company Number: None

PATIENT
  Age: 78 Year
  Sex: Female
  Weight: 58.97 kg

DRUGS (1)
  1. FLUOROURACIL. [Suspect]
     Active Substance: FLUOROURACIL
     Indication: BASAL CELL CARCINOMA
     Dosage: FLUOROURACIL 5% TOPICAL CREAM  TWICE DAILY  APPLIED TO A SURFACE, USUALLY THE SKIN.
     Route: 061
     Dates: start: 20150101, end: 20150112

REACTIONS (7)
  - Condition aggravated [None]
  - Skin erosion [None]
  - Oedema [None]
  - Skin discolouration [None]
  - Haemorrhage subcutaneous [None]
  - Pruritus [None]
  - Swelling face [None]

NARRATIVE: CASE EVENT DATE: 20150115
